FAERS Safety Report 6107366-5 (Version None)
Quarter: 2009Q1

REPORT INFORMATION
  Report Type: 
  Country: None (occurrence: None)
  Receive Date: 20090227
  Receipt Date: 20080321
  Transmission Date: 20090719
  Serious: Yes (Hospitalization, Other)
  Sender: FDA-Public Use
  Company Number: RB-0523-2008

PATIENT
  Sex: Male

DRUGS (2)
  1. SUBUTEX [Suspect]
     Indication: DRUG DEPENDENCE
     Dosage: 8 MG BID TRANSPLACENTAL, 12 MG TRANSPLACENTAL
     Route: 064
     Dates: start: 20070907, end: 20071101
  2. SUBUTEX [Suspect]
     Indication: DRUG DEPENDENCE
     Dosage: 8 MG BID TRANSPLACENTAL, 12 MG TRANSPLACENTAL
     Route: 064
     Dates: start: 20071101, end: 20080201

REACTIONS (1)
  - DRUG WITHDRAWAL SYNDROME NEONATAL [None]
